FAERS Safety Report 7581330-1 (Version None)
Quarter: 2011Q2

REPORT INFORMATION
  Report Type: 
  Country: None (occurrence: None)
  Receive Date: 20110629
  Receipt Date: 20110624
  Transmission Date: 20111010
  Serious: Yes (Other)
  Sender: FDA-Public Use
  Company Number: GR-PFIZER INC-2011140968

PATIENT
  Age: 54 Year
  Sex: Female

DRUGS (3)
  1. CEFTRIAXONE SODIUM [Suspect]
     Indication: MENINGITIS
     Dosage: 2 G, 2X/DAY
  2. AMPICILLIN SODIUM/SULBACTAM SODIUM [Suspect]
     Indication: MENINGITIS
     Dosage: 3 G, 4X/DAY
     Route: 042
  3. VANCOMYCIN HCL [Suspect]
     Indication: MENINGITIS
     Dosage: 500 MG, 4X/DAY

REACTIONS (7)
  - ORAL FUNGAL INFECTION [None]
  - ORAL HERPES [None]
  - URTICARIA [None]
  - HYPERSENSITIVITY [None]
  - DEAFNESS [None]
  - DIPLOPIA [None]
  - RETINAL HAEMORRHAGE [None]
